FAERS Safety Report 5340762-2 (Version None)
Quarter: 2007Q2

REPORT INFORMATION
  Report Type: 
  Country: None (occurrence: None)
  Receive Date: 20070531
  Receipt Date: 20070523
  Transmission Date: 20071010
  Serious: Yes (Other)
  Sender: FDA-Public Use
  Company Number: TR-SHR-TR-2007-018813

PATIENT
  Age: 38 Year
  Sex: Female
  Weight: 59 kg

DRUGS (2)
  1. MIRENA [Suspect]
     Indication: CONTRACEPTION
     Dosage: 20 A?G/DAY, CONT
     Route: 015
     Dates: start: 20060523
  2. LUSTRAL [Concomitant]
     Dosage: 0.5 OR 1 TABLET EVERY DAY
     Dates: start: 20060801

REACTIONS (3)
  - BREAST CYST [None]
  - BREAST ENGORGEMENT [None]
  - WEIGHT INCREASED [None]
